FAERS Safety Report 7930111-5 (Version None)
Quarter: 2011Q4

REPORT INFORMATION
  Report Type: 
  Country: None (occurrence: None)
  Receive Date: 20111121
  Receipt Date: 20111111
  Transmission Date: 20120403
  Serious: Yes (Death, Hospitalization, Disabling)
  Sender: FDA-Public Use
  Company Number: JP-GENZYME-THYM-1001421

PATIENT
  Sex: Female
  Weight: 55 kg

DRUGS (20)
  1. BENADRYL HCL [Concomitant]
     Indication: PREMEDICATION
     Dosage: 30 MG, UNK
     Dates: start: 20100210, end: 20100214
  2. ACETAMINOPHEN [Concomitant]
     Indication: PROPHYLAXIS
  3. THYMOGLOBULIN [Suspect]
     Indication: APLASTIC ANAEMIA
     Dosage: 122.5 MG, QD
     Route: 042
     Dates: start: 20100210, end: 20100210
  4. CYCLOSPORINE [Concomitant]
     Indication: PRODUCT USED FOR UNKNOWN INDICATION
     Dosage: .5 MG/KG, UNK
     Route: 048
     Dates: start: 20090304, end: 20100607
  5. MEROPENEM [Concomitant]
     Indication: PNEUMONIA
     Dosage: UNK
     Dates: start: 20100308, end: 20100321
  6. PREDNISOLONE [Concomitant]
     Indication: PRODUCT USED FOR UNKNOWN INDICATION
     Dosage: 50 MG, UNK
     Route: 065
     Dates: start: 20100210
  7. FLUCONAZOLE [Concomitant]
     Indication: INFECTION PROPHYLAXIS
     Dosage: UNK
     Dates: start: 20090331, end: 20100916
  8. SULFAMETHOXAZOLE W [Concomitant]
     Indication: INFECTION PROPHYLAXIS
     Dosage: UNK
     Dates: start: 20090331, end: 20100916
  9. ACETAMINOPHEN [Concomitant]
     Indication: PREMEDICATION
     Dosage: 400 MG, UNK
     Route: 065
     Dates: start: 20100210, end: 20100214
  10. CEFEPIME [Concomitant]
     Indication: PNEUMONIA
     Dosage: UNK
     Dates: start: 20100212, end: 20100219
  11. PREDNISOLONE [Concomitant]
     Dosage: 50 MG, UNK
     Dates: start: 20090325, end: 20100823
  12. DORIPENEM HYDRATE [Concomitant]
     Indication: FEBRILE NEUTROPENIA
     Dosage: UNK
     Dates: start: 20100615, end: 20100621
  13. RED BLOOD CELLS, CONCENTRATED [Concomitant]
     Indication: APLASTIC ANAEMIA
     Dosage: UNK
     Dates: start: 20090219, end: 20100917
  14. PLATELETS [Concomitant]
     Indication: APLASTIC ANAEMIA
     Dosage: UNK
     Dates: start: 20090219, end: 20100915
  15. RED BLOOD CELLS [Concomitant]
     Indication: APLASTIC ANAEMIA
     Dosage: UNK
     Dates: start: 20090219, end: 20090919
  16. BENADRYL HCL [Concomitant]
     Indication: ALLERGY PROPHYLAXIS
  17. PLATELETS [Concomitant]
     Indication: APLASTIC ANAEMIA
     Dosage: UNK
     Dates: start: 20090219, end: 20100918
  18. THYMOGLOBULIN [Suspect]
     Dosage: 125 MG, QD
     Route: 042
     Dates: start: 20100211, end: 20100214
  19. METHYLPREDNISOLONE SODIUM SUCCINATE [Concomitant]
     Indication: PRODUCT USED FOR UNKNOWN INDICATION
     Dosage: UNK
     Dates: start: 20100210, end: 20100214
  20. BIAPENEM [Concomitant]
     Indication: FEBRILE NEUTROPENIA
     Dosage: UNK
     Dates: start: 20100322, end: 20100325

REACTIONS (7)
  - FEBRILE NEUTROPENIA [None]
  - PNEUMONIA [None]
  - PYREXIA [None]
  - CYTOMEGALOVIRUS VIRAEMIA [None]
  - HAEMOLYSIS [None]
  - RETINITIS [None]
  - BLOOD LACTATE DEHYDROGENASE INCREASED [None]
